FAERS Safety Report 5773011-1 (Version None)
Quarter: 2008Q2

REPORT INFORMATION
  Report Type: 
  Country: None (occurrence: None)
  Receive Date: 20080613
  Receipt Date: 20080605
  Transmission Date: 20081010
  Serious: Yes (Hospitalization)
  Sender: FDA-Public Use
  Company Number: AU-PFIZER INC-2008048229

PATIENT
  Sex: Female
  Weight: 65 kg

DRUGS (6)
  1. CELEBREX [Suspect]
     Indication: OSTEOPOROSIS
     Route: 048
  2. MACRODANTIN [Suspect]
     Indication: URINARY TRACT DISORDER
     Route: 048
  3. FOSAMAX [Suspect]
     Route: 048
  4. DOTHEP [Suspect]
     Indication: DEPRESSION
     Route: 048
  5. PREMARIN [Suspect]
     Indication: MENOPAUSAL SYMPTOMS
     Route: 048
  6. LEVOTHYROXINE SODIUM [Concomitant]
     Route: 048

REACTIONS (5)
  - CHROMATURIA [None]
  - DECREASED APPETITE [None]
  - HEPATITIS CHOLESTATIC [None]
  - JAUNDICE [None]
  - WEIGHT DECREASED [None]
